FAERS Safety Report 9485918 (Version 1)
Quarter: 2013Q3

REPORT INFORMATION
  Report Type: Spontaneous
  Country: US (occurrence: None)
  Receive Date: 20130827
  Receipt Date: 20130827
  Transmission Date: 20140515
  Serious: Yes (Hospitalization)
  Sender: FDA-Public Use
  Company Number: None

PATIENT
  Age: 73 Year
  Sex: Male
  Weight: 90.9 kg

DRUGS (1)
  1. BICALUTAMIDE [Suspect]
     Route: 048

REACTIONS (3)
  - Swollen tongue [None]
  - Lip swelling [None]
  - Pharyngeal oedema [None]
